FAERS Safety Report 7571911-3 (Version None)
Quarter: 2011Q2

REPORT INFORMATION
  Report Type: 
  Country: None (occurrence: None)
  Receive Date: 20110624
  Receipt Date: 20101012
  Transmission Date: 20111010
  Serious: No
  Sender: FDA-Public Use
  Company Number: A0886122A

PATIENT
  Age: 83 Year
  Sex: Female

DRUGS (3)
  1. VERAMYST [Suspect]
     Indication: SINUSITIS
     Dosage: 4SPR PER DAY
     Route: 045
     Dates: start: 20100501
  2. LISINOPRIL [Concomitant]
  3. HORMONE TREATMENT [Concomitant]

REACTIONS (3)
  - OROPHARYNGEAL PAIN [None]
  - SINUS HEADACHE [None]
  - BURNING SENSATION [None]
